FAERS Safety Report 12273436 (Version 3)
Quarter: 2016Q2

REPORT INFORMATION
  Report Type: Spontaneous
  Country: JP (occurrence: JP)
  Receive Date: 20160415
  Receipt Date: 20160428
  Transmission Date: 20160815
  Serious: Yes (Death, Hospitalization)
  Sender: FDA-Public Use
  Company Number: PHJP2016JP009100

PATIENT
  Age: 73 Year
  Sex: Female

DRUGS (1)
  1. TASIGNA [Suspect]
     Active Substance: NILOTINIB
     Indication: CHRONIC MYELOID LEUKAEMIA
     Dosage: 600 MG, UNK
     Route: 048
     Dates: start: 201106, end: 20140707

REACTIONS (10)
  - Monocyte count increased [Unknown]
  - Dysplasia [Unknown]
  - Pyrexia [Unknown]
  - Paraneoplastic syndrome [Not Recovered/Not Resolved]
  - Chronic myelomonocytic leukaemia [Not Recovered/Not Resolved]
  - Anaemia [Unknown]
  - Rash [Unknown]
  - Nephrotic syndrome [Unknown]
  - Pleural effusion [Unknown]
  - Pneumonia [Fatal]

NARRATIVE: CASE EVENT DATE: 201407
